FAERS Safety Report 8550906-7 (Version None)
Quarter: 2012Q3

REPORT INFORMATION
  Report Type: 
  Country: None (occurrence: None)
  Receive Date: 20120730
  Receipt Date: 20120724
  Transmission Date: 20120928
  Serious: Yes (Other)
  Sender: FDA-Public Use
  Company Number: US-BAYER-2012-075504

PATIENT
  Age: 27 Year
  Sex: Male
  Weight: 67 kg

DRUGS (2)
  1. TRIAL PRESCRIPTION OF VYVANSE [Concomitant]
  2. ALEVE (CAPLET) [Suspect]
     Indication: PAIN
     Dosage: 2 DF, UNK
     Dates: start: 20120701

REACTIONS (6)
  - ERYTHEMA [None]
  - PENILE BLISTER [None]
  - GENITAL RASH [None]
  - PRURITUS GENERALISED [None]
  - HYPERSENSITIVITY [None]
  - SKIN DISCOLOURATION [None]
